FAERS Safety Report 26096180 (Version 1)
Quarter: 2025Q4

REPORT INFORMATION
  Report Type: Spontaneous
  Country: JP (occurrence: JP)
  Receive Date: 20251127
  Receipt Date: 20251127
  Transmission Date: 20260117
  Serious: Yes (Hospitalization)
  Sender: NOVARTIS
  Company Number: JP-002147023-NVSJ2025JP008215

PATIENT
  Sex: Female
  Weight: 45.5 kg

DRUGS (1)
  1. KESIMPTA [Suspect]
     Active Substance: OFATUMUMAB
     Indication: Relapsing-remitting multiple sclerosis
     Dosage: 20 MG, 4W
     Route: 058
     Dates: end: 20250628

REACTIONS (2)
  - Abortion threatened [Unknown]
  - Maternal exposure during pregnancy [Unknown]
